FAERS Safety Report 8989510 (Version 2)
Quarter: 2013Q2

REPORT INFORMATION
  Report Type: Spontaneous
  Country: US (occurrence: US)
  Receive Date: 20121228
  Receipt Date: 20130402
  Transmission Date: 20140414
  Serious: No
  Sender: FDA-Public Use
  Company Number: US-BIOGENIDEC-2012BI062970

PATIENT
  Age: 65 Year
  Sex: Female

DRUGS (1)
  1. TYSABRI [Suspect]
     Indication: MULTIPLE SCLEROSIS
     Route: 042
     Dates: start: 20120827, end: 20121022

REACTIONS (10)
  - Gastroenteritis viral [Unknown]
  - Insomnia [Unknown]
  - Balance disorder [Unknown]
  - Gait disturbance [Not Recovered/Not Resolved]
  - Fall [Recovered/Resolved]
  - Fungal infection [Not Recovered/Not Resolved]
  - Drug dose omission [Unknown]
  - Incontinence [Not Recovered/Not Resolved]
  - Multiple sclerosis relapse [Unknown]
  - Urinary tract infection [Not Recovered/Not Resolved]
